FAERS Safety Report 7106215-6 (Version None)
Quarter: 2010Q4

REPORT INFORMATION
  Report Type: 
  Country: None (occurrence: None)
  Receive Date: 20101116
  Receipt Date: 20101104
  Transmission Date: 20110411
  Serious: No
  Sender: FDA-Public Use
  Company Number: US-BAYER-201040656NA

PATIENT
  Age: 57 Year
  Sex: Female

DRUGS (1)
  1. ULTRAVIST 150 [Suspect]
     Indication: COMPUTERISED TOMOGRAM
     Dosage: AS USED: 100 ML  UNIT DOSE: 100 ML
     Route: 042
     Dates: start: 20101104, end: 20101104

REACTIONS (2)
  - FORMICATION [None]
  - PRURITUS [None]
